FAERS Safety Report 15597099 (Version 23)
Quarter: 2023Q4

REPORT INFORMATION
  Report Type: Other
  Country: DE (occurrence: None)
  Receive Date: 20181108
  Receipt Date: 20231122
  Transmission Date: 20240110
  Serious: Yes (Other)
  Sender: FDA-Public Use
  Company Number: DE-ROCHE-2139812

PATIENT
  Age: 38 Year
  Sex: Female

DRUGS (8)
  1. OCREVUS [Suspect]
     Active Substance: OCRELIZUMAB
     Indication: Relapsing-remitting multiple sclerosis
     Route: 042
     Dates: start: 20180529, end: 20180612
  2. OCREVUS [Suspect]
     Active Substance: OCRELIZUMAB
     Dosage: SUBSEQUENT DOSE OF OCRELIZUMAB: 27/AUG/2019, 01/APR/2021, 04/JAN/2022, 10/AUG/2023
     Route: 042
     Dates: start: 20190205
  3. LYRICA [Concomitant]
     Active Substance: PREGABALIN
  4. CHOLECALCIFEROL [Concomitant]
     Active Substance: CHOLECALCIFEROL
  5. ASPIRIN [Concomitant]
     Active Substance: ASPIRIN
  6. METAMIZOLE [Concomitant]
     Active Substance: METAMIZOLE
  7. KYLEENA [Concomitant]
     Active Substance: LEVONORGESTREL
  8. COMIRNATY (TOZINAMERAN) [Concomitant]
     Active Substance: TOZINAMERAN

REACTIONS (17)
  - Nausea [Recovered/Resolved]
  - Paraesthesia [Not Recovered/Not Resolved]
  - Multiple sclerosis [Unknown]
  - Ligament rupture [Recovered/Resolved]
  - Nausea [Unknown]
  - Fatigue [Recovered/Resolved]
  - Blood pressure decreased [Recovered/Resolved]
  - Balance disorder [Recovered/Resolved]
  - Headache [Recovered/Resolved]
  - Back pain [Recovered/Resolved]
  - Throat irritation [Recovered/Resolved]
  - Arthralgia [Recovered/Resolved]
  - Dizziness [Unknown]
  - Hypoaesthesia [Unknown]
  - COVID-19 [Recovered/Resolved]
  - SARS-CoV-2 antibody test negative [Not Recovered/Not Resolved]
  - Cystitis bacterial [Recovered/Resolved]

NARRATIVE: CASE EVENT DATE: 20180529
